FAERS Safety Report 14776884 (Version 4)
Quarter: 2018Q4

REPORT INFORMATION
  Report Type: Spontaneous
  Country: US (occurrence: US)
  Receive Date: 20180419
  Receipt Date: 20181220
  Transmission Date: 20190204
  Serious: Yes (Life-Threatening, Hospitalization, Other)
  Sender: FDA-Public Use
  Company Number: US-MACLEODS PHARMACEUTICALS US LTD-MAC2018012733

PATIENT

DRUGS (2)
  1. ZIPRASIDONE 40 MG [Suspect]
     Active Substance: ZIPRASIDONE
     Indication: TOURETTE^S DISORDER
     Dosage: 40 MG, QD
     Route: 065
  2. ZIPRASIDONE 40 MG [Suspect]
     Active Substance: ZIPRASIDONE
     Indication: OBSESSIVE-COMPULSIVE DISORDER

REACTIONS (7)
  - Pneumonia aspiration [Recovered/Resolved]
  - Muscular weakness [Recovered/Resolved]
  - Respiratory muscle weakness [Recovering/Resolving]
  - Off label use [Recovered/Resolved]
  - Blood creatine phosphokinase increased [Recovered/Resolved]
  - Myopathy toxic [Recovered/Resolved]
  - Respiratory disorder [Recovered/Resolved]
